FAERS Safety Report 17827700 (Version 1)
Quarter: 2020Q2

REPORT INFORMATION
  Report Type: Spontaneous
  Country: US (occurrence: US)
  Receive Date: 20200527
  Receipt Date: 20200527
  Transmission Date: 20200714
  Serious: No
  Sender: FDA-Public Use
  Company Number: US-BAYER-2020-096871

PATIENT
  Age: 80 Year
  Sex: Male

DRUGS (2)
  1. MIRALAX [Suspect]
     Active Substance: POLYETHYLENE GLYCOL 3350
     Indication: GASTROINTESTINAL DISORDER
     Dosage: UNK UNK, HS 1 CAP FULL DOSE
     Route: 048
     Dates: start: 201903
  2. VITAMIN D [VITAMIN D NOS] [Concomitant]
     Active Substance: VITAMIN D NOS

REACTIONS (3)
  - Frequent bowel movements [Unknown]
  - Flatulence [Unknown]
  - Faeces soft [Unknown]

NARRATIVE: CASE EVENT DATE: 201903
